FAERS Safety Report 4479464-3 (Version None)
Quarter: 2004Q4

REPORT INFORMATION
  Report Type: 
  Country: None (occurrence: None)
  Receive Date: 20041015
  Receipt Date: 20041005
  Transmission Date: 20050328
  Serious: Yes (Death)
  Sender: FDA-Public Use
  Company Number: USA-2004-0016338

PATIENT
  Age: 22 Year
  Sex: Male
  Weight: 91.2 kg

DRUGS (6)
  1. OXYCONTIN [Suspect]
     Indication: PAIN
     Dosage: 40 MG, BID, ORAL
     Route: 048
     Dates: start: 20010621, end: 20010621
  2. DESOXYN [Suspect]
     Indication: ATTENTION DEFICIT/HYPERACTIVITY DISORDER
     Dosage: 15 MG, BID, ORAL
     Route: 048
  3. VISTARIL (HYDROXYZINE EMBONATE) TABLET [Suspect]
     Indication: MIGRAINE
     Dosage: 50 MG
  4. CLONAZEPAM [Suspect]
     Dosage: 2 MG, ORAL
     Route: 048
  5. VICODIN [Suspect]
  6. DIPHENHYDRAMINE HCL [Concomitant]

REACTIONS (6)
  - ACCIDENTAL OVERDOSE [None]
  - ANXIETY [None]
  - DRUG TOXICITY [None]
  - EMOTIONAL DISTRESS [None]
  - PAIN [None]
  - REFUSAL OF TREATMENT BY PATIENT [None]
